FAERS Safety Report 9075480 (Version 1)
Quarter: 2013Q1

REPORT INFORMATION
  Report Type: Report from Study
  Country: US (occurrence: US)
  Receive Date: 20130129
  Receipt Date: 20130129
  Transmission Date: 20140127
  Serious: No
  Sender: FDA-Public Use
  Company Number: US-ABBOTT-12P-163-0925683-00

PATIENT
  Sex: Female
  Weight: 55.39 kg

DRUGS (11)
  1. HUMIRA 40 MG/ 0.8 ML PRE-FILLED SYRINGE [Suspect]
     Indication: RHEUMATOID ARTHRITIS
  2. HUMIRA 40 MG/ 0.8 ML PRE-FILLED SYRINGE [Suspect]
  3. METHOTREXATE [Concomitant]
     Indication: RHEUMATOID ARTHRITIS
  4. FOLIC ACID [Concomitant]
     Indication: VITAMIN SUPPLEMENTATION
  5. VITAMIN E [Concomitant]
     Indication: VITAMIN SUPPLEMENTATION
  6. VITAMIN C [Concomitant]
     Indication: VITAMIN SUPPLEMENTATION
  7. ACTONEL [Concomitant]
     Indication: BONE DISORDER
  8. ACTONEL [Concomitant]
     Indication: PROPHYLAXIS
  9. FISH OIL [Concomitant]
     Indication: MEDICAL DIET
  10. MULTIVITAMIN [Concomitant]
     Indication: VITAMIN SUPPLEMENTATION
  11. VITAMIN B [Concomitant]
     Indication: VITAMIN SUPPLEMENTATION

REACTIONS (3)
  - Influenza [Recovered/Resolved]
  - Sinus congestion [Recovered/Resolved]
  - Viral infection [Recovered/Resolved]
